FAERS Safety Report 4516523-0 (Version None)
Quarter: 2004Q4

REPORT INFORMATION
  Report Type: 
  Country: None (occurrence: None)
  Receive Date: 20041202
  Receipt Date: 20020627
  Transmission Date: 20050328
  Serious: Yes (Other)
  Sender: FDA-Public Use
  Company Number: CA-BRISTOL-MYERS SQUIBB COMPANY-11930310

PATIENT
  Age: 63 Year
  Sex: Female

DRUGS (14)
  1. BMS188667 [Suspect]
     Route: 042
     Dates: start: 20010524, end: 20020410
  2. METHOTREXATE [Suspect]
     Indication: RHEUMATOID ARTHRITIS
     Route: 048
     Dates: start: 19980101
  3. FOLIC ACID [Concomitant]
     Route: 048
     Dates: start: 19980101
  4. TYLENOL W/ CODEINE NO. 3 [Concomitant]
     Route: 048
     Dates: start: 20000701
  5. PREDNISONE [Concomitant]
     Route: 048
     Dates: start: 19930101
  6. ALTACE [Concomitant]
     Route: 048
     Dates: start: 20010301
  7. VITAMINS A + D [Concomitant]
     Route: 048
     Dates: start: 19960101
  8. CALCIUM [Concomitant]
     Route: 048
     Dates: start: 19970101
  9. VITAMIN E [Concomitant]
     Route: 048
     Dates: start: 19960101
  10. VITAMIN C [Concomitant]
     Route: 048
     Dates: start: 19960101
  11. INDAPAMIDE [Concomitant]
     Route: 048
     Dates: start: 20010401
  12. INDOCIN [Concomitant]
     Route: 048
     Dates: start: 19891001
  13. DIDRONEL [Concomitant]
     Route: 048
     Dates: start: 19970901
  14. CYTOTEC [Concomitant]
     Route: 048
     Dates: start: 19930101

REACTIONS (1)
  - SQUAMOUS CELL CARCINOMA [None]
